FAERS Safety Report 8393373-9 (Version None)
Quarter: 2012Q2

REPORT INFORMATION
  Report Type: 
  Country: None (occurrence: None)
  Receive Date: 20120529
  Receipt Date: 20120515
  Transmission Date: 20120825
  Serious: No
  Sender: FDA-Public Use
  Company Number: US-ASTRAZENECA-2010SE06017

PATIENT
  Age: 72 Year
  Sex: Female
  Weight: 91.6 kg

DRUGS (11)
  1. POTASSIUM CHLORIDE [Concomitant]
  2. ARIMIDEX [Suspect]
     Route: 048
     Dates: start: 20050101, end: 20120425
  3. NEXIUM [Suspect]
     Route: 048
  4. HYDROCHLOROTHIAZIDE [Concomitant]
  5. LORAZEPAM [Concomitant]
  6. ARIMIDEX [Suspect]
     Indication: BREAST CANCER
     Route: 048
     Dates: start: 20050101, end: 20100101
  7. OS-CAL 500 [Suspect]
     Dosage: 500
     Route: 065
  8. FISH OIL [Concomitant]
  9. PAXIL [Concomitant]
  10. VITAMIN B COMPLEX CAP [Concomitant]
  11. SYNTHROID [Concomitant]

REACTIONS (20)
  - OSTEOPOROSIS [None]
  - ARTHRALGIA [None]
  - DEPRESSION [None]
  - INSOMNIA [None]
  - DYSPEPSIA [None]
  - LIBIDO DECREASED [None]
  - NASOPHARYNGITIS [None]
  - OSTEOPENIA [None]
  - COUGH [None]
  - OEDEMA PERIPHERAL [None]
  - NASAL CONGESTION [None]
  - CHILLS [None]
  - EYE PAIN [None]
  - RHINORRHOEA [None]
  - NEUROPATHY PERIPHERAL [None]
  - HEADACHE [None]
  - LETHARGY [None]
  - PYREXIA [None]
  - MYALGIA [None]
  - FATIGUE [None]
